FAERS Safety Report 18286982 (Version 1)
Quarter: 2020Q3

REPORT INFORMATION
  Report Type: Spontaneous
  Country: ES (occurrence: ES)
  Receive Date: 20200921
  Receipt Date: 20200921
  Transmission Date: 20201103
  Serious: Yes (Hospitalization)
  Sender: FDA-Public Use
  Company Number: ES-ROCHE-2679818

PATIENT
  Age: 71 Year
  Sex: Female

DRUGS (1)
  1. ROACTEMRA [Suspect]
     Active Substance: TOCILIZUMAB
     Indication: RHEUMATOID ARTHRITIS
     Dosage: 10 DAYS
     Route: 058
     Dates: start: 20190218, end: 20200826

REACTIONS (1)
  - Squamous cell carcinoma [Recovering/Resolving]

NARRATIVE: CASE EVENT DATE: 20200115
